FAERS Safety Report 15084813 (Version 2)
Quarter: 2018Q3

REPORT INFORMATION
  Report Type: Spontaneous
  Country: US (occurrence: US)
  Receive Date: 20180628
  Receipt Date: 20180725
  Transmission Date: 20181010
  Serious: No
  Sender: FDA-Public Use
  Company Number: US-009507513-1806USA011705

PATIENT
  Sex: Female

DRUGS (1)
  1. ASMANEX [Suspect]
     Active Substance: MOMETASONE FUROATE
     Dosage: UNK, BID
     Route: 048

REACTIONS (3)
  - No adverse event [Unknown]
  - Circumstance or information capable of leading to device use error [Unknown]
  - Product quality issue [Unknown]
